FAERS Safety Report 21314821 (Version 1)
Quarter: 2022Q3

REPORT INFORMATION
  Report Type: Spontaneous
  Country: US (occurrence: None)
  Receive Date: 20220909
  Receipt Date: 20220909
  Transmission Date: 20221027
  Serious: No
  Sender: FDA-Public Use
  Company Number: US-ARIS GLOBAL-202111-2044

PATIENT
  Sex: Male
  Weight: 70.370 kg

DRUGS (12)
  1. OXERVATE [Suspect]
     Active Substance: CENEGERMIN-BKBJ
     Indication: Neurotrophic keratopathy
     Route: 047
     Dates: start: 20211103
  2. PROLIA [Concomitant]
     Active Substance: DENOSUMAB
  3. TESTOSTERONE [Concomitant]
     Active Substance: TESTOSTERONE
     Dosage: 1.25G-1.62
  4. LORAZEPAM [Concomitant]
     Active Substance: LORAZEPAM
  5. LOVASTATIN [Concomitant]
     Active Substance: LOVASTATIN
  6. NIASPAN [Concomitant]
     Active Substance: NIACIN
  7. FUROSEMIDE [Concomitant]
     Active Substance: FUROSEMIDE
  8. LISINOPRIL [Concomitant]
     Active Substance: LISINOPRIL
  9. LOSARTAN POTASSIUM [Concomitant]
     Active Substance: LOSARTAN POTASSIUM
  10. CARVEDILOL [Concomitant]
     Active Substance: CARVEDILOL
  11. DRY EYE [Concomitant]
     Dosage: 1-0.2-0.2%
  12. TIMOLOL-DORZOLAMIDE [Concomitant]
     Dosage: 2%-0.5%

REACTIONS (3)
  - Eyelid pain [Unknown]
  - Product dose omission issue [Unknown]
  - Drug ineffective [Unknown]
